FAERS Safety Report 5830913-5 (Version None)
Quarter: 2008Q3

REPORT INFORMATION
  Report Type: 
  Country: None (occurrence: None)
  Receive Date: 20080801
  Receipt Date: 20080214
  Transmission Date: 20090109
  Serious: No
  Sender: FDA-Public Use
  Company Number: US-BRISTOL-MYERS SQUIBB COMPANY-14060677

PATIENT
  Age: 76 Year
  Sex: Female
  Weight: 57 kg

DRUGS (12)
  1. COUMADIN [Suspect]
     Indication: ATRIAL FIBRILLATION
     Dosage: 5 MG DAILY EXCEPT TUESDAY AND THURSDAY, TUESDAY AND THURSDAY 7.5 MG
     Route: 048
  2. WARFARIN SODIUM [Suspect]
     Indication: ATRIAL FIBRILLATION
     Dates: start: 20070801
  3. CENTRUM SILVER [Concomitant]
  4. CENTRUM [Concomitant]
  5. MAXZIDE [Concomitant]
  6. K-DUR [Concomitant]
  7. OS-CAL [Concomitant]
  8. TYLENOL [Concomitant]
  9. TOPROL-XL [Concomitant]
  10. PREMPRO [Concomitant]
  11. LORATADINE [Concomitant]
  12. BENADRYL [Concomitant]
     Indication: INSOMNIA

REACTIONS (1)
  - PROTHROMBIN TIME ABNORMAL [None]
